FAERS Safety Report 9118470 (Version 1)
Quarter: 2013Q1

REPORT INFORMATION
  Report Type: Spontaneous
  Country: US (occurrence: US)
  Receive Date: 20130219
  Receipt Date: 20130219
  Transmission Date: 20140127
  Serious: No
  Sender: FDA-Public Use
  Company Number: US-BRISTOL-MYERS SQUIBB COMPANY-17164625

PATIENT
  Age: 44 Year
  Sex: Female
  Weight: 111.11 kg

DRUGS (12)
  1. ABATACEPT SUBQ INJECTION 125MG/ML [Suspect]
     Dosage: 1DF=125MG/1ML.(4 PACK)
     Route: 058
  2. RELAFEN [Concomitant]
     Dosage: TAB
  3. PREDNISONE [Concomitant]
     Dosage: TAB
  4. SYNTHROID [Concomitant]
     Dosage: TAB
  5. FIORICET [Concomitant]
     Dosage: TAB
  6. SKELAXIN [Concomitant]
     Dosage: TAB
  7. SAVELLA [Concomitant]
     Dosage: TAB
  8. LEXAPRO [Concomitant]
     Dosage: TAB
  9. FISH OIL [Concomitant]
     Dosage: CAP
  10. IMMUNE GLOBULIN HUMAN [Concomitant]
  11. KADIAN [Concomitant]
     Dosage: CAP.CR
  12. FOLIC ACID [Concomitant]
     Dosage: TAB

REACTIONS (2)
  - Headache [Recovering/Resolving]
  - Flushing [Recovering/Resolving]
